FAERS Safety Report 12920503 (Version 1)
Quarter: 2016Q4

REPORT INFORMATION
  Report Type: Report from Study
  Country: BR (occurrence: BR)
  Receive Date: 20161108
  Receipt Date: 20161108
  Transmission Date: 20170207
  Serious: Yes (Other)
  Sender: FDA-Public Use
  Company Number: PHHY2016BR132145

PATIENT
  Age: 67 Year
  Sex: Female
  Weight: 61 kg

DRUGS (4)
  1. RASILEZ [Suspect]
     Active Substance: ALISKIREN
     Indication: HYPERTENSION
     Dosage: 1 DF, QD (FOR SIX YEARS)
     Route: 048
     Dates: start: 2011
  2. RASILEZ [Suspect]
     Active Substance: ALISKIREN
     Dosage: 0.5 DF (150 MG), QD (AT NOON)
     Route: 048
  3. RASILEZ [Suspect]
     Active Substance: ALISKIREN
     Dosage: 1 DF, QD (IN THE MORNING)
     Route: 065
     Dates: start: 20160908
  4. RASILEZ [Suspect]
     Active Substance: ALISKIREN
     Dosage: 0.5 DF, QD
     Route: 048

REACTIONS (5)
  - Drug ineffective [Recovering/Resolving]
  - Blood pressure increased [Recovering/Resolving]
  - Wrong technique in product usage process [Unknown]
  - Malaise [Unknown]
  - Product quality issue [Unknown]

NARRATIVE: CASE EVENT DATE: 20160908
